FAERS Safety Report 25752473 (Version 1)
Quarter: 2025Q3

REPORT INFORMATION
  Report Type: Spontaneous
  Country: CN (occurrence: CN)
  Receive Date: 20250902
  Receipt Date: 20250902
  Transmission Date: 20251021
  Serious: Yes (Other)
  Sender: NOVARTIS
  Company Number: CN-002147023-NVSC2025CN132585

PATIENT
  Age: 55 Year
  Sex: Male
  Weight: 60 kg

DRUGS (4)
  1. TRILEPTAL [Suspect]
     Active Substance: OXCARBAZEPINE
     Indication: Epileptic psychosis
     Dosage: 0.300 G, BID
     Route: 048
     Dates: start: 20231122, end: 20241014
  2. TRILEPTAL [Suspect]
     Active Substance: OXCARBAZEPINE
     Dosage: 0.600 G, BID
     Route: 048
     Dates: start: 20241014, end: 20241203
  3. TRILEPTAL [Suspect]
     Active Substance: OXCARBAZEPINE
     Dosage: 0.450 G, BID
     Route: 048
     Dates: start: 20241204, end: 20250815
  4. TRILEPTAL [Suspect]
     Active Substance: OXCARBAZEPINE
     Dosage: 0.300 G, BID
     Route: 048
     Dates: start: 20250815, end: 20250819

REACTIONS (3)
  - Epilepsy [Recovered/Resolved]
  - Hyponatraemia [Recovering/Resolving]
  - Hypochloraemia [Recovering/Resolving]

NARRATIVE: CASE EVENT DATE: 20250815
